FAERS Safety Report 10060538 (Version 1)
Quarter: 2014Q2

REPORT INFORMATION
  Report Type: Spontaneous
  Country: SE (occurrence: SE)
  Receive Date: 20140404
  Receipt Date: 20140404
  Transmission Date: 20141212
  Serious: Yes (Hospitalization)
  Sender: FDA-Public Use
  Company Number: SE-JNJFOC-20140402879

PATIENT
  Age: 26 Year
  Sex: Female

DRUGS (4)
  1. REMICADE [Suspect]
     Indication: CROHN^S DISEASE
     Route: 042
     Dates: start: 2001
  2. REMICADE [Suspect]
     Indication: CROHN^S DISEASE
     Route: 042
     Dates: start: 2010, end: 20131213
  3. PENTASA [Concomitant]
     Route: 065
  4. PURINETHOL [Concomitant]
     Route: 065

REACTIONS (4)
  - Blindness [Recovering/Resolving]
  - Pruritus [Recovering/Resolving]
  - Migraine [Recovering/Resolving]
  - Rash [Recovering/Resolving]
